FAERS Safety Report 26165366 (Version 1)
Quarter: 2025Q4

REPORT INFORMATION
  Report Type: Spontaneous
  Country: US (occurrence: None)
  Receive Date: 20251216
  Receipt Date: 20251216
  Transmission Date: 20260117
  Serious: Yes (Hospitalization)
  Sender: FDA-CTU
  Company Number: None

PATIENT
  Age: 61 Year
  Sex: Female
  Weight: 76 kg

DRUGS (2)
  1. ZEPBOUND [Suspect]
     Active Substance: TIRZEPATIDE
  2. LITHIUM [Suspect]
     Active Substance: LITHIUM

REACTIONS (4)
  - Bradycardia [None]
  - Antipsychotic drug level increased [None]
  - Impaired gastric emptying [None]
  - Contraindicated product administered [None]

NARRATIVE: CASE EVENT DATE: 20251213
